FAERS Safety Report 18712438 (Version 1)
Quarter: 2021Q1

REPORT INFORMATION
  Report Type: Spontaneous
  Country: CN (occurrence: CN)
  Receive Date: 20210107
  Receipt Date: 20210107
  Transmission Date: 20210419
  Serious: Yes (Other)
  Sender: FDA-Public Use
  Company Number: CN-PFIZER INC-2021001048

PATIENT
  Age: 60 Year
  Sex: Male

DRUGS (1)
  1. ZYVOX [Suspect]
     Active Substance: LINEZOLID
     Indication: SEPSIS
     Dosage: 0.6 G, 2X/DAY
     Route: 041
     Dates: start: 20201218, end: 20201224

REACTIONS (8)
  - Lymphocyte count decreased [Unknown]
  - Red blood cell count decreased [Not Recovered/Not Resolved]
  - Haematocrit decreased [Not Recovered/Not Resolved]
  - White blood cell count decreased [Not Recovered/Not Resolved]
  - Neutrophil percentage increased [Unknown]
  - Lymphocyte percentage decreased [Unknown]
  - Platelet count decreased [Not Recovered/Not Resolved]
  - Haemoglobin decreased [Not Recovered/Not Resolved]

NARRATIVE: CASE EVENT DATE: 20201224
